FAERS Safety Report 7469934-8 (Version None)
Quarter: 2011Q2

REPORT INFORMATION
  Report Type: 
  Country: None (occurrence: None)
  Receive Date: 20110510
  Receipt Date: 20110505
  Transmission Date: 20111010
  Serious: Yes (Hospitalization)
  Sender: FDA-Public Use
  Company Number: IT-TEVA-280496ISR

PATIENT
  Sex: Male

DRUGS (8)
  1. FLUOROURACIL [Suspect]
     Indication: NASOPHARYNGEAL CANCER
     Dates: start: 20110306, end: 20110327
  2. DOCETAXEL [Suspect]
     Indication: NASOPHARYNGEAL CANCER
     Dates: start: 20110306, end: 20110327
  3. DILTIAZEM [Concomitant]
  4. GLICLAZIDE [Concomitant]
  5. METFORMIN HCL [Concomitant]
  6. CISPLATIN [Suspect]
     Indication: NASOPHARYNGEAL CANCER
     Dates: start: 20110306, end: 20110327
  7. ACETYL SALICYLIC ACID USP BAT [Concomitant]
  8. PRAVASTATIN [Concomitant]

REACTIONS (2)
  - STOMATITIS [None]
  - HEPATITIS [None]
